FAERS Safety Report 9252599 (Version 1)
Quarter: 2013Q1

REPORT INFORMATION
  Report Type: Spontaneous
  Country: US (occurrence: None)
  Receive Date: 20130305
  Receipt Date: 20130305
  Transmission Date: 20140127
  Serious: Yes (Other)
  Sender: FDA-Public Use
  Company Number: 163-21880-12083196

PATIENT
  Age: 82 Year
  Sex: Male
  Weight: 62.6 kg

DRUGS (8)
  1. REVLIMID [Suspect]
     Dosage: 21 IN 21 D
     Route: 048
     Dates: start: 20120117
  2. BUMEX [Concomitant]
  3. DIGOXIN (DIGOXIN) [Concomitant]
  4. HYDRALAZINE (HYDRALAZINE) [Concomitant]
  5. HYDROXYUREA (HYDROXYCARBAMIDE) [Concomitant]
  6. ISORBIDE [Concomitant]
  7. LIPITOR (ATORVASTATIN) [Concomitant]
  8. WARFARIN (WARFARIN) [Concomitant]

REACTIONS (3)
  - Weight decreased [None]
  - Diarrhoea [None]
  - Back pain [None]
